FAERS Safety Report 9365855 (Version 1)
Quarter: 2013Q2

REPORT INFORMATION
  Report Type: Report from Study
  Country: MX (occurrence: MX)
  Receive Date: 20130625
  Receipt Date: 20130625
  Transmission Date: 20140414
  Serious: Yes (Hospitalization, Other)
  Sender: FDA-Public Use
  Company Number: PHHY2013MX064632

PATIENT
  Age: 65 Year
  Sex: Female

DRUGS (1)
  1. EXFORGE HCT [Suspect]
     Dosage: UNK (160/5/12.5MG), UNK
     Route: 048
     Dates: end: 201305

REACTIONS (2)
  - Cardiomegaly [Recovering/Resolving]
  - Blood pressure decreased [Recovered/Resolved]
